FAERS Safety Report 6939281-9 (Version None)
Quarter: 2010Q3

REPORT INFORMATION
  Report Type: 
  Country: None (occurrence: None)
  Receive Date: 20100824
  Receipt Date: 20100816
  Transmission Date: 20110219
  Serious: Yes (Hospitalization)
  Sender: FDA-Public Use
  Company Number: CA-TYCO HEALTHCARE/MALLINCKRODT-T201001804

PATIENT
  Age: 59 Year
  Sex: Female

DRUGS (1)
  1. OPTIRAY 350 [Suspect]
     Dosage: 100 ML, SINGLE
     Route: 042

REACTIONS (2)
  - PHARYNGEAL OEDEMA [None]
  - TONGUE OEDEMA [None]
